APPROVED DRUG PRODUCT: HYDROXYZINE HYDROCHLORIDE
Active Ingredient: HYDROXYZINE HYDROCHLORIDE
Strength: 10MG/5ML
Dosage Form/Route: SYRUP;ORAL
Application: A088785 | Product #001
Applicant: ALPHARMA US PHARMACEUTICALS DIVISION
Approved: Feb 3, 1988 | RLD: No | RS: No | Type: DISCN